FAERS Safety Report 26099820 (Version 1)
Quarter: 2025Q4

REPORT INFORMATION
  Report Type: Spontaneous
  Country: EU (occurrence: EU)
  Receive Date: 20251128
  Receipt Date: 20251128
  Transmission Date: 20260117
  Serious: No
  Sender: ALKEM
  Company Number: EU-ALKEM LABORATORIES LIMITED-GB-ALKEM-2025-08529

PATIENT
  Sex: Male

DRUGS (9)
  1. OLANZAPINE [Suspect]
     Active Substance: OLANZAPINE
     Indication: Schizophrenia
     Dosage: 20 MILLIGRAM
     Route: 065
  2. AMISULPRIDE [Suspect]
     Active Substance: AMISULPRIDE
     Indication: Schizophrenia
     Dosage: 800 MILLIGRAM
     Route: 065
  3. CARIPRAZINE [Suspect]
     Active Substance: CARIPRAZINE
     Indication: Schizophrenia
     Dosage: 1.5 MILLIGRAM INITIAL DOSE
     Route: 065
  4. CARIPRAZINE [Suspect]
     Active Substance: CARIPRAZINE
     Dosage: 6 MILLIGRAM FINAL DOSE
     Route: 065
  5. CLOZAPINE [Suspect]
     Active Substance: CLOZAPINE
     Indication: Schizophrenia
     Dosage: 400 MILLIGRAM
     Route: 065
  6. ALPRAZOLAM [Concomitant]
     Active Substance: ALPRAZOLAM
     Indication: Schizophrenia
     Dosage: 3 MILLIGRAM
     Route: 065
  7. BISOPROLOL [Concomitant]
     Active Substance: BISOPROLOL
     Indication: Schizophrenia
     Dosage: 5 MILLIGRAM
     Route: 065
  8. URSODIOL [Concomitant]
     Active Substance: URSODIOL
     Indication: Schizophrenia
     Dosage: 1000 MILLIGRAM
     Route: 065
  9. RAMIPRIL [Concomitant]
     Active Substance: RAMIPRIL
     Indication: Schizophrenia
     Dosage: 2.5 MILLIGRAM
     Route: 065

REACTIONS (3)
  - Agitation [Unknown]
  - Anxiety [Unknown]
  - Therapy non-responder [Unknown]
